FAERS Safety Report 6005579-4 (Version None)
Quarter: 2008Q4

REPORT INFORMATION
  Report Type: 
  Country: None (occurrence: None)
  Receive Date: 20081216
  Receipt Date: 20081216
  Transmission Date: 20090506
  Serious: No
  Sender: FDA-Public Use
  Company Number: None

PATIENT
  Age: 46 Year
  Sex: Female
  Weight: 81.6475 kg

DRUGS (2)
  1. PEG-INTRON [Suspect]
     Indication: HEPATITIS C
     Dosage: WEEKLY SQ
     Route: 058
     Dates: start: 20021101, end: 20031001
  2. RIBAVIRIN [Suspect]
     Dosage: DAILY PO
     Route: 048

REACTIONS (8)
  - CHRONIC FATIGUE SYNDROME [None]
  - DEPRESSION [None]
  - ECONOMIC PROBLEM [None]
  - FIBROMYALGIA [None]
  - IMPAIRED WORK ABILITY [None]
  - MIGRAINE [None]
  - PAIN [None]
  - WHITE BLOOD CELL COUNT DECREASED [None]
